FAERS Safety Report 5426324-7 (Version None)
Quarter: 2007Q3

REPORT INFORMATION
  Report Type: 
  Country: None (occurrence: None)
  Receive Date: 20070827
  Receipt Date: 20070821
  Transmission Date: 20080115
  Serious: Yes (Hospitalization)
  Sender: FDA-Public Use
  Company Number: HQWYE091024AUG05

PATIENT
  Sex: Female
  Weight: 68.1 kg

DRUGS (6)
  1. EFFEXOR XR [Suspect]
     Indication: PANIC ATTACK
     Dosage: ^TITRATED UP TO 300 MG^
     Route: 048
     Dates: start: 19990101, end: 20050801
  2. EFFEXOR XR [Suspect]
     Indication: DEPRESSION
     Dosage: RESTARTED DOSE AND FREQUENCY UNSPECIFIED
     Route: 048
     Dates: end: 20070101
  3. EFFEXOR XR [Suspect]
     Indication: BIPOLAR DISORDER
     Dosage: TAPER DOSE AND FREQUENCY UNSPECIFIED
     Route: 048
     Dates: start: 20070101, end: 20070401
  4. EFFEXOR XR [Suspect]
     Route: 048
     Dates: start: 20070401, end: 20070101
  5. EFFEXOR XR [Suspect]
     Route: 048
     Dates: start: 20070101
  6. PROVIGIL [Concomitant]

REACTIONS (5)
  - DRUG EXPOSURE DURING PREGNANCY [None]
  - DRUG WITHDRAWAL SYNDROME [None]
  - FORMICATION [None]
  - SUICIDAL IDEATION [None]
  - TINNITUS [None]
